FAERS Safety Report 16762585 (Version 1)
Quarter: 2019Q3

REPORT INFORMATION
  Report Type: Spontaneous
  Country: US (occurrence: US)
  Receive Date: 20190831
  Receipt Date: 20190831
  Transmission Date: 20191005
  Serious: No
  Sender: FDA-Public Use
  Company Number: US-SHIRE-US201928517

PATIENT
  Sex: Female

DRUGS (1)
  1. PENTASA [Suspect]
     Active Substance: MESALAMINE
     Indication: CROHN^S DISEASE
     Dosage: 500 MILLIGRAM, UNKNOWN
     Route: 065

REACTIONS (3)
  - Abdominal distension [Unknown]
  - Eczema [Unknown]
  - Intentional product use issue [Unknown]
